FAERS Safety Report 6536972-9 (Version None)
Quarter: 2010Q1

REPORT INFORMATION
  Report Type: 
  Country: None (occurrence: None)
  Receive Date: 20100107
  Receipt Date: 20091230
  Transmission Date: 20100710
  Serious: No
  Sender: FDA-Public Use
  Company Number: 20107894

PATIENT
  Sex: Female

DRUGS (1)
  1. LIORESAL [Suspect]
     Indication: MUSCLE SPASTICITY
     Dosage: 75 MCG, DAILY, INTRATHECAL, FLEX MOD

REACTIONS (5)
  - CONDITION AGGRAVATED [None]
  - HEART RATE INCREASED [None]
  - MUSCLE SPASTICITY [None]
  - TREATMENT NONCOMPLIANCE [None]
  - WITHDRAWAL SYNDROME [None]
